FAERS Safety Report 17821166 (Version 1)
Quarter: 2020Q2

REPORT INFORMATION
  Report Type: Spontaneous
  Country: DE (occurrence: DE)
  Receive Date: 20200525
  Receipt Date: 20200525
  Transmission Date: 20200714
  Serious: Yes (Hospitalization)
  Sender: FDA-Public Use
  Company Number: DE-ROCHE-2605572

PATIENT
  Age: 67 Year
  Sex: Male
  Weight: 105 kg

DRUGS (6)
  1. LEVEMIR [Concomitant]
     Active Substance: INSULIN DETEMIR
     Indication: DIABETES MELLITUS
     Route: 058
     Dates: start: 20110401
  2. SIMVASTATIN. [Concomitant]
     Active Substance: SIMVASTATIN
     Indication: HYPERLIPIDAEMIA
     Route: 048
     Dates: start: 20120927
  3. TOFACITINIB [Concomitant]
     Active Substance: TOFACITINIB
     Route: 065
     Dates: start: 20190214
  4. TORASEMIDE [Concomitant]
     Active Substance: TORSEMIDE
     Indication: HYPERTENSION
     Route: 048
     Dates: start: 20161212
  5. ROACTEMRA [Suspect]
     Active Substance: TOCILIZUMAB
     Indication: PRODUCT USED FOR UNKNOWN INDICATION
     Dosage: PAUSED FROM BEGINNING OF FEB-2020 TO END OF FEB-2020, THEN CONTINUED
     Route: 058
     Dates: start: 20191109
  6. METAMIZOLE [Concomitant]
     Active Substance: METAMIZOLE
     Indication: POLYNEUROPATHY
     Route: 048
     Dates: start: 20190412

REACTIONS (1)
  - Spondylolisthesis [Recovered/Resolved with Sequelae]

NARRATIVE: CASE EVENT DATE: 20200204
